FAERS Safety Report 9417139 (Version 1)
Quarter: 2013Q3

REPORT INFORMATION
  Report Type: Spontaneous
  Country: FR (occurrence: FR)
  Receive Date: 20130724
  Receipt Date: 20130724
  Transmission Date: 20140515
  Serious: Yes (Other)
  Sender: FDA-Public Use
  Company Number: FR-TEVA-421070ISR

PATIENT
  Age: 94 Year
  Sex: Female

DRUGS (1)
  1. FUROSEMIDE TEVA 40 MG [Suspect]
     Dosage: 60 MILLIGRAM DAILY; 40 MG ON MORNING AND 20 MG ON NOON
     Route: 048
     Dates: start: 201305, end: 2013

REACTIONS (2)
  - Oedema [Recovered/Resolved]
  - Somnolence [Recovered/Resolved]
